FAERS Safety Report 13848182 (Version 1)
Quarter: 2017Q3

REPORT INFORMATION
  Report Type: Spontaneous
  Country: US (occurrence: US)
  Receive Date: 20170809
  Receipt Date: 20170809
  Transmission Date: 20171127
  Serious: Yes (Other)
  Sender: FDA-Public Use
  Company Number: US-NAPPMUNDI-USA-2017-0138855

PATIENT
  Age: 68 Year
  Sex: Male

DRUGS (1)
  1. BUTRANS [Suspect]
     Active Substance: BUPRENORPHINE
     Indication: PAIN
     Dosage: 10 MG/HR, WEEKLY
     Route: 062
     Dates: start: 20170511, end: 20170511

REACTIONS (8)
  - Respiratory distress [Recovered/Resolved]
  - Nervousness [Recovered/Resolved]
  - Unevaluable event [Recovered/Resolved]
  - Headache [Recovered/Resolved]
  - Inadequate analgesia [Recovered/Resolved]
  - Cold sweat [Recovered/Resolved]
  - Malaise [Recovered/Resolved]
  - Feeling hot [Recovered/Resolved]

NARRATIVE: CASE EVENT DATE: 20170511
